FAERS Safety Report 10922371 (Version 1)
Quarter: 2015Q1

REPORT INFORMATION
  Report Type: Spontaneous
  Country: US (occurrence: US)
  Receive Date: 20150317
  Receipt Date: 20150317
  Transmission Date: 20150721
  Serious: No
  Sender: FDA-Public Use
  Company Number: US-BAUSCH-BL-2014-003532

PATIENT
  Sex: Female

DRUGS (1)
  1. CROMOLYN SODIUM OPHTHALMIC SOLUTION USP 4% [Suspect]
     Active Substance: CROMOLYN SODIUM
     Indication: HYPERSENSITIVITY
     Dosage: 1 SPRAY
     Route: 045
     Dates: start: 20140426, end: 20140516

REACTIONS (1)
  - Anosmia [Not Recovered/Not Resolved]

NARRATIVE: CASE EVENT DATE: 2014
